FAERS Safety Report 5007887-2 (Version None)
Quarter: 2006Q2

REPORT INFORMATION
  Report Type: 
  Country: None (occurrence: None)
  Receive Date: 20060522
  Receipt Date: 20060510
  Transmission Date: 20061013
  Serious: Yes (Hospitalization)
  Sender: FDA-Public Use
  Company Number: 2006UW09314

PATIENT
  Age: 78 Year
  Sex: Female

DRUGS (3)
  1. SEROQUEL [Suspect]
     Indication: MANIA
     Dosage: 50MG IN AM; 100MG HS
     Route: 048
     Dates: start: 20060401
  2. 3 HYPERTENSION CONTROL MEDICATIONS [Concomitant]
     Indication: HYPERTENSION
  3. MULTIPLE MEDICATIONS [Concomitant]

REACTIONS (2)
  - HYPOTENSION [None]
  - LOSS OF CONSCIOUSNESS [None]
